FAERS Safety Report 6063915-7 (Version None)
Quarter: 2009Q1

REPORT INFORMATION
  Report Type: 
  Country: None (occurrence: None)
  Receive Date: 20090204
  Receipt Date: 20090122
  Transmission Date: 20090719
  Serious: Yes (Hospitalization, Other)
  Sender: FDA-Public Use
  Company Number: PHEH2009US01031

PATIENT
  Sex: Male

DRUGS (1)
  1. TRILEPTAL [Suspect]
     Dosage: 300 MG, UNK
     Dates: start: 20090101

REACTIONS (11)
  - BALANCE DISORDER [None]
  - CONSTIPATION [None]
  - CONVULSION [None]
  - DEMENTIA [None]
  - DYSGEUSIA [None]
  - EYE DISORDER [None]
  - FATIGUE [None]
  - HEADACHE [None]
  - LIBIDO DECREASED [None]
  - MEMORY IMPAIRMENT [None]
  - WEIGHT DECREASED [None]
